FAERS Safety Report 20189189 (Version 1)
Quarter: 2021Q4

REPORT INFORMATION
  Report Type: Spontaneous
  Country: US (occurrence: None)
  Receive Date: 20211215
  Receipt Date: 20211215
  Transmission Date: 20220304
  Serious: Yes (Death, Life-Threatening)
  Sender: FDA-Public Use
  Company Number: None

PATIENT
  Age: 66 Year
  Sex: Female
  Weight: 95.5 kg

DRUGS (14)
  1. BARICITINIB [Suspect]
     Active Substance: BARICITINIB
     Indication: COVID-19
     Dosage: FREQUENCY : DAILY;?
     Route: 048
     Dates: start: 20211128, end: 20211130
  2. BARICITINIB [Suspect]
     Active Substance: BARICITINIB
     Indication: COVID-19
     Dosage: FREQUENCY : DAILY;?
     Route: 048
     Dates: start: 20211201, end: 20211207
  3. ACETYLCYSTEINE [Concomitant]
     Active Substance: ACETYLCYSTEINE
     Dates: start: 20211209, end: 20211212
  4. ALBUTEROL [Concomitant]
     Active Substance: ALBUTEROL
     Dates: start: 20211209, end: 20211212
  5. AMIODARONE [Concomitant]
     Active Substance: AMIODARONE
     Dates: start: 20211209, end: 20211212
  6. BISACODYL [Concomitant]
     Active Substance: BISACODYL
     Dates: start: 20211209, end: 20211212
  7. DILTIAZEM [Concomitant]
     Active Substance: DILTIAZEM
     Dates: start: 20211211, end: 20211211
  8. FUROSEMIDE [Concomitant]
     Active Substance: FUROSEMIDE
     Dates: start: 20211209, end: 20211209
  9. MEROPENEM [Concomitant]
     Active Substance: MEROPENEM
     Dates: start: 20211211, end: 20211212
  10. METHYLNALTREXONE [Concomitant]
     Active Substance: METHYLNALTREXONE
     Dates: start: 20211210, end: 20211210
  11. Norepinehrine [Concomitant]
     Dates: start: 20211211, end: 20211211
  12. SODIUM BICARBONATE [Concomitant]
     Active Substance: SODIUM BICARBONATE
     Dates: start: 20211208, end: 20211212
  13. VANCOMYCIN [Concomitant]
     Active Substance: VANCOMYCIN
     Dates: start: 20211211, end: 20211212
  14. VASOPRESSIN [Concomitant]
     Active Substance: VASOPRESSIN
     Dates: start: 20211211, end: 20211212

REACTIONS (6)
  - Acute respiratory distress syndrome [None]
  - Superinfection [None]
  - Bacteraemia [None]
  - Death [None]
  - Pulmonary embolism [None]
  - Fibrin D dimer increased [None]

NARRATIVE: CASE EVENT DATE: 20211201
